FAERS Safety Report 6255967-6 (Version None)
Quarter: 2009Q3

REPORT INFORMATION
  Report Type: 
  Country: None (occurrence: None)
  Receive Date: 20090706
  Receipt Date: 20090701
  Transmission Date: 20100115
  Serious: Yes (Other)
  Sender: FDA-Public Use
  Company Number: DE-BRISTOL-MYERS SQUIBB COMPANY-14680706

PATIENT
  Age: 38 Year
  Sex: Male

DRUGS (3)
  1. REYATAZ [Suspect]
  2. NORVIR [Suspect]
  3. TRUVADA [Suspect]

REACTIONS (1)
  - OSTEONECROSIS [None]
